FAERS Safety Report 22347724 (Version 3)
Quarter: 2024Q1

REPORT INFORMATION
  Report Type: Report from Study
  Country: US (occurrence: US)
  Receive Date: 20230522
  Receipt Date: 20240202
  Transmission Date: 20240409
  Serious: Yes (Other)
  Sender: FDA-Public Use
  Company Number: US-ACADIA PHARMACEUTICALS INC.-ACA-2023-PIM-001653

PATIENT
  Age: 80 Year
  Sex: Male

DRUGS (17)
  1. NUPLAZID [Suspect]
     Active Substance: PIMAVANSERIN TARTRATE
     Indication: Parkinson^s disease psychosis
     Dosage: 34 MILLIGRAM, QD
     Route: 048
     Dates: start: 202304, end: 202304
  2. NUPLAZID [Suspect]
     Active Substance: PIMAVANSERIN TARTRATE
     Indication: Hallucination
     Dosage: 34 MILLIGRAM, QD
     Route: 048
     Dates: start: 20230501
  3. NUPLAZID [Suspect]
     Active Substance: PIMAVANSERIN TARTRATE
     Indication: Delusion
     Dosage: 34 MILLIGRAM, QD
     Route: 048
  4. B12 ACTIVE [Concomitant]
     Dosage: 1 MILLIGRAM, CHEWABLE
  5. BENZONATATE [Concomitant]
     Active Substance: BENZONATATE
     Dosage: 100 MILLIGRAM
  6. CARBIDOPA\LEVODOPA [Concomitant]
     Active Substance: CARBIDOPA\LEVODOPA
     Dosage: 25-100 MG
  7. DEXAMETHASONE [Concomitant]
     Active Substance: DEXAMETHASONE
     Dosage: 4 MILLIGRAM
  8. DOXYCYCLINE [Concomitant]
     Active Substance: DOXYCYCLINE
     Dosage: 100 MILLIGRAM
  9. ELIQUIS [Concomitant]
     Active Substance: APIXABAN
     Dosage: 5 MILLIGRAM
  10. FOLIC ACID [Concomitant]
     Active Substance: FOLIC ACID
     Dosage: 800 MICROGRAM
  11. LEVOTHYROXINE [Concomitant]
     Active Substance: LEVOTHYROXINE\LEVOTHYROXINE SODIUM
     Dosage: 50 MICROGRAM
  12. LINZESS [Concomitant]
     Active Substance: LINACLOTIDE
     Dosage: 145 MICROGRAM
  13. MEMANTINE [Concomitant]
     Active Substance: MEMANTINE
     Dosage: 5 MILLIGRAM
  14. PROBIOTICS NOS [Concomitant]
     Active Substance: PROBIOTICS NOS
  15. SENOKOT [Concomitant]
     Active Substance: SENNOSIDES
     Dosage: 8.6 GRAM
  16. TAMSULOSIN HYDROCHLORIDE [Concomitant]
     Active Substance: TAMSULOSIN HYDROCHLORIDE
     Dosage: 0.4 MG
  17. VITAMIN D3 [Concomitant]
     Active Substance: CHOLECALCIFEROL
     Dosage: 50 MICROGRAM

REACTIONS (24)
  - Pneumonia [Not Recovered/Not Resolved]
  - Urinary tract infection [Unknown]
  - Product dose omission issue [Unknown]
  - Fluid retention [Not Recovered/Not Resolved]
  - Upper-airway cough syndrome [Not Recovered/Not Resolved]
  - Infection [Not Recovered/Not Resolved]
  - Bronchitis [Not Recovered/Not Resolved]
  - Abnormal behaviour [Not Recovered/Not Resolved]
  - Productive cough [Not Recovered/Not Resolved]
  - Posture abnormal [Not Recovered/Not Resolved]
  - Fatigue [Not Recovered/Not Resolved]
  - Illness [Not Recovered/Not Resolved]
  - Delusion [Not Recovered/Not Resolved]
  - Fungal infection [Not Recovered/Not Resolved]
  - Insomnia [Unknown]
  - Expired product administered [Unknown]
  - Cough [Unknown]
  - Increased viscosity of upper respiratory secretion [Unknown]
  - Pain [Unknown]
  - Hallucination, visual [Not Recovered/Not Resolved]
  - Gait disturbance [Not Recovered/Not Resolved]
  - Hallucination [Unknown]
  - Somnolence [Unknown]
  - Constipation [Unknown]

NARRATIVE: CASE EVENT DATE: 20230401
